FAERS Safety Report 7119933-0 (Version None)
Quarter: 2010Q4

REPORT INFORMATION
  Report Type: 
  Country: None (occurrence: None)
  Receive Date: 20101123
  Receipt Date: 20101028
  Transmission Date: 20110411
  Serious: No
  Sender: FDA-Public Use
  Company Number: US-BRISTOL-MYERS SQUIBB COMPANY-15357023

PATIENT
  Age: 60 Year
  Sex: Male
  Weight: 136 kg

DRUGS (7)
  1. ONGLYZA [Suspect]
  2. LIPITOR [Concomitant]
  3. SEROTONIN REUPTAKE INHIBITORS [Concomitant]
  4. BUSPIRONE HCL [Concomitant]
  5. ZETIA [Concomitant]
  6. LISINOPRIL [Concomitant]
  7. LOVAZA [Concomitant]

REACTIONS (1)
  - PAROSMIA [None]
